FAERS Safety Report 7508962-0 (Version None)
Quarter: 2011Q2

REPORT INFORMATION
  Report Type: 
  Country: None (occurrence: None)
  Receive Date: 20110527
  Receipt Date: 20110525
  Transmission Date: 20111010
  Serious: Yes (Hospitalization)
  Sender: FDA-Public Use
  Company Number: JP-PFIZER INC-2011085823

PATIENT
  Age: 65 Year
  Sex: Female

DRUGS (4)
  1. NORVASC [Suspect]
     Dosage: UNK
     Route: 048
     Dates: end: 20110225
  2. DIOVAN [Concomitant]
     Dosage: UNK
     Dates: end: 20110225
  3. TICLOPIDINE HCL [Concomitant]
     Dosage: UNK
     Dates: end: 20110225
  4. GLUCOBAY [Concomitant]
     Dosage: UNK
     Dates: end: 20110225

REACTIONS (3)
  - CEREBRAL INFARCTION [None]
  - FIBROMA [None]
  - TOXIC SKIN ERUPTION [None]
